FAERS Safety Report 6376093-1 (Version None)
Quarter: 2009Q3

REPORT INFORMATION
  Report Type: 
  Country: None (occurrence: None)
  Receive Date: 20090921
  Receipt Date: 20090916
  Transmission Date: 20100115
  Serious: Yes (Death)
  Sender: FDA-Public Use
  Company Number: 2009SP025612

PATIENT
  Age: 58 Year
  Sex: Male

DRUGS (6)
  1. REMERON [Suspect]
     Indication: DRUG USE FOR UNKNOWN INDICATION
     Dosage: 30 MG; QD; PO
     Route: 048
     Dates: start: 20081120, end: 20090301
  2. PAROXETINE HYDROCHLORIDE [Suspect]
     Indication: DRUG USE FOR UNKNOWN INDICATION
     Dosage: 20 MG; QD; PO
     Route: 048
     Dates: start: 20081206, end: 20090301
  3. PANTOZOL [Concomitant]
  4. INDERAL [Concomitant]
  5. ADALAT [Concomitant]
  6. IBRUPROFEN [Concomitant]

REACTIONS (3)
  - ANXIETY [None]
  - COMPLETED SUICIDE [None]
  - FEELING GUILTY [None]
